FAERS Safety Report 9632302 (Version 1)
Quarter: 2013Q4

REPORT INFORMATION
  Report Type: Spontaneous
  Country: TR (occurrence: None)
  Receive Date: 20131016
  Receipt Date: 20131016
  Transmission Date: 20140711
  Serious: Yes (Other)
  Sender: FDA-Public Use
  Company Number: SYM-2013-11589

PATIENT
  Age: 52 Year
  Sex: Male

DRUGS (3)
  1. TARGRETIN [Suspect]
     Indication: MYCOSIS FUNGOIDES
     Route: 048
  2. INTERFERON ALFA [Concomitant]
  3. FENOFIBRATE [Concomitant]

REACTIONS (7)
  - Hypopituitarism [None]
  - Hypertriglyceridaemia [None]
  - Hypogonadism [None]
  - Hypothyroidism [None]
  - Adrenal insufficiency [None]
  - Blood pressure decreased [None]
  - Erectile dysfunction [None]
